FAERS Safety Report 7777026-3 (Version None)
Quarter: 2011Q3

REPORT INFORMATION
  Report Type: 
  Country: None (occurrence: None)
  Receive Date: 20110926
  Receipt Date: 20110926
  Transmission Date: 20111222
  Serious: Yes (Other)
  Sender: FDA-Public Use
  Company Number: None

PATIENT
  Age: 21 Year
  Sex: Male
  Weight: 90.718 kg

DRUGS (4)
  1. CYMBALTA [Concomitant]
     Indication: SPINAL DISORDER
     Dosage: 1 PER DOES
     Route: 048
     Dates: start: 20110901, end: 20110919
  2. CYMBALTA [Concomitant]
     Indication: NERVE INJURY
     Dosage: 1 PER DOES
     Route: 048
     Dates: start: 20110901, end: 20110919
  3. GABAPENTIN [Suspect]
     Indication: SPINAL DISORDER
     Dosage: 2 PER DOES
     Route: 048
     Dates: start: 20110901, end: 20110921
  4. GABAPENTIN [Suspect]
     Indication: NERVE INJURY
     Dosage: 2 PER DOES
     Route: 048
     Dates: start: 20110901, end: 20110921

REACTIONS (13)
  - DELUSION [None]
  - MENTAL IMPAIRMENT [None]
  - MIGRAINE [None]
  - DIZZINESS [None]
  - SUICIDAL IDEATION [None]
  - MUSCULOSKELETAL CHEST PAIN [None]
  - DYSPNOEA [None]
  - ABDOMINAL PAIN UPPER [None]
  - SOMNOLENCE [None]
  - AGGRESSION [None]
  - MEMORY IMPAIRMENT [None]
  - HUNGER [None]
  - MOOD SWINGS [None]
